FAERS Safety Report 7462552-7 (Version None)
Quarter: 2011Q2

REPORT INFORMATION
  Report Type: 
  Country: None (occurrence: None)
  Receive Date: 20110506
  Receipt Date: 20090930
  Transmission Date: 20111010
  Serious: Yes (Other)
  Sender: FDA-Public Use
  Company Number: US-BAYER-200934734NA

PATIENT
  Age: 76 Year
  Sex: Male
  Weight: 64.399 kg

DRUGS (15)
  1. TRASYLOL [Suspect]
     Indication: AORTIC VALVE REPLACEMENT
     Dosage: DRIP AT 50 ML / HOUR
     Route: 042
     Dates: start: 20060609, end: 20060609
  2. AMARYL [Concomitant]
     Dosage: 2 MG, UNK
     Route: 048
  3. OMNIPAQUE 140 [Concomitant]
     Dosage: 80 ML, UNK
     Dates: start: 20060608
  4. SODIUM NITROPRUSSIDE [Concomitant]
     Dosage: 100 MG, UNK
     Dates: start: 20060609, end: 20060609
  5. HEPARIN [Concomitant]
     Dosage: 30000 U, UNK
     Route: 042
     Dates: start: 20060609, end: 20060609
  6. NITROGLYCERIN [Concomitant]
     Dosage: 50 MG/10ML
     Route: 042
     Dates: start: 20060609, end: 20060609
  7. KANAMYCIN [Concomitant]
     Dosage: 500MG
     Route: 042
     Dates: start: 20060609, end: 20060609
  8. VERAPAMIL [Concomitant]
     Dosage: 05MG/2ML
     Route: 042
     Dates: start: 20060609, end: 20060609
  9. PROTAMINE SULFATE [Concomitant]
     Dosage: 400 MG, UNK
     Route: 042
     Dates: start: 20060609, end: 20060609
  10. VERSED [Concomitant]
     Dosage: 2 MG, UNK
     Route: 042
     Dates: start: 20060609, end: 20060609
  11. DOBUTAMINE HYDROCHLORIDE [Concomitant]
     Dosage: WEANED OF
     Route: 041
     Dates: end: 20060610
  12. ALBUMIN (HUMAN) [Concomitant]
     Dosage: 250 ML, UNK
     Dates: start: 20060609, end: 20060609
  13. RED BLOOD CELLS [Concomitant]
     Dosage: 1 U, UNK
     Dates: start: 20060614
  14. INSULIN [INSULIN] [Concomitant]
     Dosage: 25 U, UNK
     Route: 042
     Dates: start: 20060609, end: 20060609
  15. TRASYLOL [Suspect]
     Indication: CORONARY ARTERY BYPASS
     Dosage: 200 ML, CARDIOPULMONARY BYPASS PRIME
     Route: 042
     Dates: start: 20060609, end: 20060609

REACTIONS (9)
  - ANXIETY [None]
  - PAIN [None]
  - UNEVALUABLE EVENT [None]
  - ANHEDONIA [None]
  - INJURY [None]
  - FEAR [None]
  - DEPRESSION [None]
  - AMNESIA [None]
  - RENAL FAILURE [None]
